FAERS Safety Report 6918168-1 (Version None)
Quarter: 2010Q3

REPORT INFORMATION
  Report Type: 
  Country: None (occurrence: None)
  Receive Date: 20100806
  Receipt Date: 20100722
  Transmission Date: 20110219
  Serious: Yes (Hospitalization)
  Sender: FDA-Public Use
  Company Number: IMP_05072_2010

PATIENT
  Sex: Female

DRUGS (3)
  1. BUPROPION HCL [Suspect]
     Indication: ANXIETY
     Dosage: (300 MG QD ORAL)
     Route: 048
     Dates: start: 20100705, end: 20100719
  2. BUPROPION HCL [Suspect]
     Indication: DEPRESSION
     Dosage: (300 MG QD ORAL)
     Route: 048
     Dates: start: 20100705, end: 20100719
  3. NOVOLOG [Concomitant]

REACTIONS (2)
  - BLOOD GLUCOSE FLUCTUATION [None]
  - HYPOGLYCAEMIA [None]
